FAERS Safety Report 9350114 (Version 1)
Quarter: 2013Q2

REPORT INFORMATION
  Report Type: Spontaneous
  Country: US (occurrence: US)
  Receive Date: 20130616
  Receipt Date: 20130616
  Transmission Date: 20140414
  Serious: No
  Sender: FDA-Public Use
  Company Number: US-009507513-1306USA003248

PATIENT
  Age: 72 Year
  Sex: Female

DRUGS (2)
  1. JANUVIA [Suspect]
     Indication: DIABETES MELLITUS
     Dosage: 100 MG, QD
     Route: 048
     Dates: end: 201303
  2. METFORMIN [Concomitant]

REACTIONS (1)
  - Dyspepsia [Recovered/Resolved]
